FAERS Safety Report 16081855 (Version 1)
Quarter: 2019Q1

REPORT INFORMATION
  Report Type: Spontaneous
  Country: US (occurrence: US)
  Receive Date: 20190316
  Receipt Date: 20190316
  Transmission Date: 20190418
  Serious: No
  Sender: FDA-Public Use
  Company Number: US-009507513-1903USA002134

PATIENT
  Age: 38 Year
  Sex: Female

DRUGS (11)
  1. FOLLISTIM AQ [Suspect]
     Active Substance: FOLLITROPIN
     Indication: INFERTILITY FEMALE
     Dosage: 600 INTERNATIONAL UNIT (IU)/0.72 MILLILITER (ML) (MAX DOSE 450 UNITS), EVERYDAY (QD)
     Route: 058
     Dates: start: 20190228
  2. MENOPUR [Concomitant]
     Active Substance: FOLLITROPIN\LUTEINIZING HORMONE
  3. CEPHALEXIN. [Concomitant]
     Active Substance: CEPHALEXIN
  4. GANIRELIX ACETATE INJECTION [Suspect]
     Active Substance: GANIRELIX ACETATE
     Indication: INFERTILITY FEMALE
     Dosage: 250 MICROGRAM, QD
     Route: 058
     Dates: start: 20190228
  5. NOVAREL [Concomitant]
     Active Substance: CHORIOGONADOTROPIN ALFA
  6. FOLLISTIM AQ [Suspect]
     Active Substance: FOLLITROPIN
     Indication: INFERTILITY FEMALE
     Dosage: 300 IU/0.36 ML (MAX DOSE 450 UNITS), EVERYDAY (QD)
     Route: 058
     Dates: start: 20190228
  7. PROMETHAZINE [Concomitant]
     Active Substance: PROMETHAZINE\PROMETHAZINE HYDROCHLORIDE
  8. NORTREL (LEVONORGESTREL) [Concomitant]
     Active Substance: LEVONORGESTREL
  9. AZITHROMYCIN ANHYDROUS. [Concomitant]
     Active Substance: AZITHROMYCIN ANHYDROUS
  10. NITROFURANTOIN. [Concomitant]
     Active Substance: NITROFURANTOIN
  11. LEVOTHYROXINE SODIUM. [Concomitant]
     Active Substance: LEVOTHYROXINE SODIUM

REACTIONS (1)
  - Hypoacusis [Not Recovered/Not Resolved]

NARRATIVE: CASE EVENT DATE: 20190302
